FAERS Safety Report 7584876-5 (Version None)
Quarter: 2011Q2

REPORT INFORMATION
  Report Type: 
  Country: None (occurrence: None)
  Receive Date: 20110630
  Receipt Date: 20110627
  Transmission Date: 20111010
  Serious: Yes (Life-Threatening)
  Sender: FDA-Public Use
  Company Number: PHHY2011FR57017

PATIENT
  Sex: Female

DRUGS (2)
  1. TEGRETOL [Suspect]
     Indication: EPILEPSY
     Dosage: 400 MG, DAILY
     Dates: start: 20070101, end: 20110602
  2. METHIMAZOLE [Suspect]
     Indication: BASEDOW'S DISEASE
     Dosage: UNK UKN, UNK
     Dates: start: 20110401, end: 20110601

REACTIONS (5)
  - NEUTROPHIL COUNT DECREASED [None]
  - BLOOD CREATINE PHOSPHOKINASE INCREASED [None]
  - RHABDOMYOLYSIS [None]
  - THROMBOCYTOPENIA [None]
  - AGRANULOCYTOSIS [None]
